FAERS Safety Report 10139287 (Version 1)
Quarter: 2014Q2

REPORT INFORMATION
  Report Type: Spontaneous
  Country: US (occurrence: US)
  Receive Date: 20140429
  Receipt Date: 20140429
  Transmission Date: 20141212
  Serious: No
  Sender: FDA-Public Use
  Company Number: US-009507513-1404USA014194

PATIENT
  Sex: Male

DRUGS (6)
  1. CLARITIN CHEWABLE TABLETS [Suspect]
     Indication: HYPERSENSITIVITY
     Dosage: UNK, UNKNOWN
     Route: 048
  2. CLARITIN CHEWABLE TABLETS [Suspect]
     Indication: SNEEZING
  3. CLARITIN CHEWABLE TABLETS [Suspect]
     Indication: OCULAR HYPERAEMIA
  4. CLARITIN CHEWABLE TABLETS [Suspect]
     Indication: EYE PRURITUS
  5. CLARITIN CHEWABLE TABLETS [Suspect]
     Indication: RHINORRHOEA
  6. CLARITIN CHEWABLE TABLETS [Suspect]
     Indication: ECZEMA

REACTIONS (2)
  - Somnolence [Unknown]
  - Therapeutic product ineffective [Unknown]
